FAERS Safety Report 6372997-4 (Version None)
Quarter: 2009Q3

REPORT INFORMATION
  Report Type: 
  Country: None (occurrence: None)
  Receive Date: 20090924
  Receipt Date: 20081222
  Transmission Date: 20100115
  Serious: No
  Sender: FDA-Public Use
  Company Number: US-ASTRAZENECA-2008UW28623

PATIENT
  Sex: Female

DRUGS (3)
  1. SEROQUEL [Suspect]
     Dosage: UNKNOWN
     Route: 048
  2. LAMICTAL [Concomitant]
  3. DEPAKOTE [Concomitant]

REACTIONS (3)
  - DRY MOUTH [None]
  - DYSKINESIA [None]
  - ILL-DEFINED DISORDER [None]
